FAERS Safety Report 4743965-0 (Version None)
Quarter: 2005Q3

REPORT INFORMATION
  Report Type: 
  Country: None (occurrence: None)
  Receive Date: 20050812
  Receipt Date: 20050803
  Transmission Date: 20060218
  Serious: Yes (Hospitalization)
  Sender: FDA-Public Use
  Company Number: JP-ROCHE-412794

PATIENT
  Age: 57 Year
  Sex: Female

DRUGS (5)
  1. PANALDINE [Suspect]
     Indication: ANGINA PECTORIS
     Route: 048
     Dates: start: 20050610, end: 20050630
  2. ASPIRIN [Suspect]
     Indication: DRUG USE FOR UNKNOWN INDICATION
     Route: 048
     Dates: start: 20050630, end: 20050702
  3. ADALAT [Concomitant]
     Route: 048
     Dates: end: 20050713
  4. GLYBURIDE [Concomitant]
     Route: 048
     Dates: end: 20050709
  5. BASEN [Concomitant]
     Route: 048
     Dates: end: 20050709

REACTIONS (6)
  - CHROMATURIA [None]
  - DECREASED APPETITE [None]
  - HEPATITIS CHOLESTATIC [None]
  - JAUNDICE [None]
  - LIVER DISORDER [None]
  - NAUSEA [None]
